FAERS Safety Report 11270613 (Version 1)
Quarter: 2015Q3

REPORT INFORMATION
  Report Type: Spontaneous
  Country: US (occurrence: US)
  Receive Date: 20150714
  Receipt Date: 20150714
  Transmission Date: 20151125
  Serious: Yes (Hospitalization)
  Sender: FDA-Public Use
  Company Number: US-PURDUE-USA-2015-0124879

PATIENT
  Sex: Female

DRUGS (1)
  1. MS CONTIN [Suspect]
     Active Substance: MORPHINE SULFATE
     Indication: MALAISE
     Dosage: 180 MG, TID
     Route: 048
     Dates: start: 1999

REACTIONS (2)
  - Dehydration [Unknown]
  - Vomiting [Unknown]
